FAERS Safety Report 20463005 (Version 2)
Quarter: 2022Q2

REPORT INFORMATION
  Report Type: Spontaneous
  Country: JP (occurrence: JP)
  Receive Date: 20220211
  Receipt Date: 20220406
  Transmission Date: 20220721
  Serious: Yes (Death, Hospitalization, Other)
  Sender: FDA-Public Use
  Company Number: JP-MSD-M2022-04829

PATIENT
  Age: 61 Year
  Sex: Male

DRUGS (3)
  1. KEYTRUDA [Suspect]
     Active Substance: PEMBROLIZUMAB
     Indication: Oesophageal cancer metastatic
     Dosage: 200 MILLIGRAM, Q3W
     Route: 041
     Dates: start: 202201, end: 202201
  2. FLUOROURACIL [Concomitant]
     Active Substance: FLUOROURACIL
     Dosage: 800 MILLIGRAM/SQ. METER, CONTINUOUS INTRAVENOUS INFUSION FOR 5 DAYS
     Route: 041
     Dates: start: 202110, end: 202201
  3. CISPLATIN [Concomitant]
     Active Substance: CISPLATIN
     Dosage: 80 MILLIGRAM/SQ. METER, QD
     Route: 051
     Dates: start: 202110, end: 202201

REACTIONS (5)
  - Malignant neoplasm progression [Fatal]
  - Myelosuppression [Not Recovered/Not Resolved]
  - Haematemesis [Unknown]
  - Dyspnoea [Not Recovered/Not Resolved]
  - Malaise [Unknown]

NARRATIVE: CASE EVENT DATE: 20220101
